FAERS Safety Report 11334726 (Version 1)
Quarter: 2015Q3

REPORT INFORMATION
  Report Type: Spontaneous
  Country: DE (occurrence: None)
  Receive Date: 20150731
  Receipt Date: 20150731
  Transmission Date: 20151125
  Serious: Yes (Death, Hospitalization, Other)
  Sender: FDA-Public Use
  Company Number: DE-H14001-15-01409

PATIENT
  Age: 62 Year
  Sex: Female
  Weight: 77 kg

DRUGS (3)
  1. RIBOEPI [Suspect]
     Active Substance: EPIRUBICIN
     Indication: BREAST CANCER
     Dosage: 154 MG, CYCLE 1), INTRAVENOUS DRIP
     Route: 041
     Dates: start: 20150528, end: 20150528
  2. ENDOXAN [Suspect]
     Active Substance: CYCLOPHOSPHAMIDE
     Indication: BREAST CANCER
     Dosage: 1032 MG, CYCLE 1, INTRAVENOUS DRIP
     Route: 041
     Dates: start: 20150528, end: 20150528
  3. ANTIBIOTIC (ANTIBIOTICS) (UNKNOWN) [Suspect]
     Active Substance: UNSPECIFIED INGREDIENT
     Indication: ANTIBIOTIC PROPHYLAXIS

REACTIONS (10)
  - Lymphocyte percentage decreased [None]
  - Neutrophil percentage increased [None]
  - White blood cell count increased [None]
  - Thrombocytopenia [None]
  - Neutropenia [None]
  - Haemoglobin decreased [None]
  - Red blood cell count decreased [None]
  - Neutrophil count increased [None]
  - Haematocrit decreased [None]
  - Multi-organ disorder [None]

NARRATIVE: CASE EVENT DATE: 20150702
